FAERS Safety Report 23102546 (Version 4)
Quarter: 2024Q2

REPORT INFORMATION
  Report Type: Report from Study
  Country: JP (occurrence: JP)
  Receive Date: 20231025
  Receipt Date: 20240401
  Transmission Date: 20240716
  Serious: Yes (Hospitalization)
  Sender: FDA-Public Use
  Company Number: JP-ABBVIE-18S-087-2571391-00

PATIENT
  Age: 73 Year
  Sex: Female
  Weight: 40 kg

DRUGS (2)
  1. CARBIDOPA\LEVODOPA [Suspect]
     Active Substance: CARBIDOPA\LEVODOPA
     Indication: Parkinson^s disease
     Dosage: MD: 8 ML?CD: 2.6 ML/HR ? 16 HRS?ED: 1 ML/UNIT ? 7 TIMES
     Route: 050
     Dates: start: 20200511
  2. CARBIDOPA\LEVODOPA [Suspect]
     Active Substance: CARBIDOPA\LEVODOPA
     Route: 050
     Dates: start: 20181109, end: 20200502

REACTIONS (4)
  - Skin infection [Recovered/Resolved]
  - Mobility decreased [Not Recovered/Not Resolved]
  - Arthralgia [Unknown]
  - Stoma site discharge [Unknown]

NARRATIVE: CASE EVENT DATE: 20200515
